FAERS Safety Report 10791909 (Version 1)
Quarter: 2015Q1

REPORT INFORMATION
  Report Type: Spontaneous
  Country: IT (occurrence: None)
  Receive Date: 20150211
  Receipt Date: 20150211
  Transmission Date: 20150721
  Serious: Yes (Other)
  Sender: FDA-Public Use
  Company Number: IT-ALKEM-000848

PATIENT
  Age: 67 Year
  Sex: Male

DRUGS (2)
  1. PREDNISONE. [Concomitant]
     Active Substance: PREDNISONE
  2. MYCOPHENOLATE MOFETIL (MYCOPHENOLATE MOFETIL) [Suspect]
     Active Substance: MYCOPHENOLATE MOFETIL
     Indication: ALLERGIC GRANULOMATOUS ANGIITIS

REACTIONS (1)
  - Kaposi^s sarcoma [None]
